FAERS Safety Report 8757420 (Version 2)
Quarter: 2012Q4

REPORT INFORMATION
  Report Type: 
  Country: US (occurrence: US)
  Receive Date: 20120828
  Receipt Date: 20121015
  Transmission Date: 20130627
  Serious: No
  Sender: FDA-Public Use
  Company Number: US-BAYER-2012-088615

PATIENT
  Age: 19 Year
  Sex: Male

DRUGS (1)
  1. GADAVIST [Suspect]
     Indication: ANGIOGRAM
     Dosage: 12 ml, ONCE
     Route: 042
     Dates: start: 20120821, end: 20120821

REACTIONS (1)
  - Vomiting [Recovered/Resolved]
